FAERS Safety Report 5157889-0 (Version None)
Quarter: 2006Q4

REPORT INFORMATION
  Report Type: 
  Country: None (occurrence: None)
  Receive Date: 20061120
  Receipt Date: 20061120
  Transmission Date: 20070319
  Serious: Yes (Hospitalization)
  Sender: FDA-Public Use
  Company Number: None

PATIENT
  Age: 68 Year
  Sex: Male
  Weight: 83.3 kg

DRUGS (7)
  1. XELODA [Suspect]
     Dosage: 2500 MG Q WEEK
     Dates: start: 20061009, end: 20061105
  2. OXALIPLATIN [Suspect]
     Dosage: 525 MG QOW
     Dates: start: 20061009, end: 20061108
  3. KEPPRA [Concomitant]
  4. TOPROL-XL [Concomitant]
  5. LISINOPRIL [Concomitant]
  6. CIPRO [Concomitant]
  7. FLAGYL [Concomitant]

REACTIONS (3)
  - ABDOMINAL PAIN LOWER [None]
  - DIARRHOEA [None]
  - INTESTINAL ISCHAEMIA [None]
